FAERS Safety Report 21892388 (Version 2)
Quarter: 2023Q2

REPORT INFORMATION
  Report Type: Report from Study
  Country: CA (occurrence: CA)
  Receive Date: 20230120
  Receipt Date: 20230518
  Transmission Date: 20230721
  Serious: Yes (Other)
  Sender: FDA-Public Use
  Company Number: CA-JAZZ-2022-CA-036022

PATIENT
  Age: 39 Year
  Sex: Female

DRUGS (8)
  1. XYREM [Suspect]
     Active Substance: SODIUM OXYBATE
     Indication: Cataplexy
     Dosage: 4.5 GRAM  (DIVIDED IN TWO EQUAL DOSE (QHS AND 2.5 HOURS AFTER FIRST DOSE)
     Route: 048
     Dates: start: 20200109, end: 20200123
  2. XYREM [Suspect]
     Active Substance: SODIUM OXYBATE
     Indication: Narcolepsy
     Dosage: 6 GRAM  (DIVIDED IN TWO EQUAL DOSE (QHS AND 2.5 HOURS AFTER FIRST DOSE)
     Route: 048
     Dates: start: 20200124, end: 20200223
  3. XYREM [Suspect]
     Active Substance: SODIUM OXYBATE
     Dosage: 7.5 GRAM  (DIVIDED IN TWO EQUAL DOSE (QHS AND 2.5 HOURS AFTER FIRST DOSE)
     Route: 048
     Dates: start: 20200224, end: 20200309
  4. XYREM [Suspect]
     Active Substance: SODIUM OXYBATE
     Dosage: 9 GRAM  (DIVIDED IN TWO EQUAL DOSE (QHS AND 2.5 HOURS AFTER FIRST DOSE)
     Route: 048
     Dates: start: 20200310, end: 20200901
  5. XYREM [Suspect]
     Active Substance: SODIUM OXYBATE
     Dosage: 6 GRAM (DIVIDED IN TWO EQUAL DOSE (QHS AND 2.5 HOURS AFTER FIRST DOSE)
     Route: 048
     Dates: start: 20200902
  6. XYREM [Suspect]
     Active Substance: SODIUM OXYBATE
     Dosage: 7.5 GRAM (DIVIDED IN TWO EQUAL DOSE (QHS AND 2.5 HOURS AFTER FIRST DOSE)
     Route: 048
     Dates: start: 20221223
  7. ZOLPIDEM TARTRATE [Concomitant]
     Active Substance: ZOLPIDEM TARTRATE
     Indication: Product used for unknown indication
     Dosage: DOSE : 10 MG
  8. EFFEXOR [Concomitant]
     Active Substance: VENLAFAXINE HYDROCHLORIDE
     Indication: Product used for unknown indication
     Dosage: DOSE : 150 MG

REACTIONS (3)
  - Hysterectomy [Unknown]
  - Malaise [Unknown]
  - Product administration interrupted [Unknown]

NARRATIVE: CASE EVENT DATE: 20220530
